FAERS Safety Report 8169290-6 (Version None)
Quarter: 2012Q1

REPORT INFORMATION
  Report Type: 
  Country: None (occurrence: None)
  Receive Date: 20120228
  Receipt Date: 20120220
  Transmission Date: 20120608
  Serious: Yes (Death)
  Sender: FDA-Public Use
  Company Number: FI-BIOGENIDEC-2011BI046717

PATIENT
  Age: 40 Year
  Sex: Female

DRUGS (5)
  1. THYROXIN [Concomitant]
     Indication: HYPOTHYROIDISM
  2. NORTRIPTYLINE HCL [Concomitant]
  3. AZONA [Concomitant]
  4. TYSABRI [Suspect]
     Indication: MULTIPLE SCLEROSIS
     Route: 042
     Dates: start: 20110714, end: 20111103
  5. QUETIAPINE [Concomitant]

REACTIONS (1)
  - COMPLETED SUICIDE [None]
